FAERS Safety Report 8297321-1 (Version None)
Quarter: 2012Q2

REPORT INFORMATION
  Report Type: 
  Country: None (occurrence: None)
  Receive Date: 20120417
  Receipt Date: 20120404
  Transmission Date: 20120825
  Serious: Yes (Congenital Anomaly, Other)
  Sender: FDA-Public Use
  Company Number: 20120174

PATIENT

DRUGS (6)
  1. PHENYTOIN SODIUM [Suspect]
     Indication: AFFECTIVE DISORDER
     Dosage: 500 MG
  2. PHENYTOIN SODIUM [Suspect]
     Indication: EPILEPSY
     Dosage: 500 MG
  3. TOPIRAMATE [Suspect]
     Indication: EPILEPSY
     Dosage: 400 MG
  4. TOPIRAMATE [Suspect]
     Indication: AFFECTIVE DISORDER
     Dosage: 400 MG
  5. CARBAMAZEPINE [Suspect]
     Indication: AFFECTIVE DISORDER
     Dosage: 1000 MG
  6. CARBAMAZEPINE [Suspect]
     Indication: EPILEPSY
     Dosage: 1000 MG

REACTIONS (6)
  - MATERNAL DRUGS AFFECTING FOETUS [None]
  - PULMONARY MALFORMATION [None]
  - ABORTION INDUCED [None]
  - CONGENITAL CARDIOVASCULAR ANOMALY [None]
  - BRAIN MALFORMATION [None]
  - SYNDACTYLY [None]
